FAERS Safety Report 4386337-3 (Version None)
Quarter: 2004Q2

REPORT INFORMATION
  Report Type: 
  Country: None (occurrence: None)
  Receive Date: 20040623
  Receipt Date: 20040612
  Transmission Date: 20050107
  Serious: Yes (Other)
  Sender: FDA-Public Use
  Company Number: 2004018917

PATIENT
  Age: 54 Year
  Sex: Female
  Weight: 56.6996 kg

DRUGS (5)
  1. ZOLOFT [Suspect]
     Indication: DEPRESSION POSTMENOPAUSAL
     Dosage: 25 MG (DAILY), ORAL
     Route: 048
     Dates: start: 20040101, end: 20040317
  2. LEVOTHYROXINE SODIUM [Concomitant]
  3. ESTROGEN NOS (ESTROGEN NOS) [Concomitant]
  4. PROGESTERONE [Concomitant]
  5. ALL OTHER THERAPEUTIC PRODUCTS (ALL OTHER THERAPEUTIC PRODUCTS) [Concomitant]

REACTIONS (10)
  - COORDINATION ABNORMAL [None]
  - DECREASED ACTIVITY [None]
  - DIFFICULTY IN WALKING [None]
  - GLIOBLASTOMA [None]
  - MYOPIA [None]
  - PHOTOPHOBIA [None]
  - SOMNOLENCE [None]
  - VISION BLURRED [None]
  - VISUAL ACUITY REDUCED [None]
  - VISUAL DISTURBANCE [None]
